FAERS Safety Report 14900381 (Version 1)
Quarter: 2018Q2

REPORT INFORMATION
  Report Type: Spontaneous
  Country: US (occurrence: US)
  Receive Date: 20180427
  Receipt Date: 20180427
  Transmission Date: 20180711
  Serious: Yes (Hospitalization)
  Sender: FDA-Public Use
  Company Number: None

PATIENT
  Age: 50 Year
  Sex: Female

DRUGS (8)
  1. MYCOPHENOLATE 250MG CAPSULES [Suspect]
     Active Substance: MYCOPHENOLATE MOFETIL
     Indication: RENAL TRANSPLANT
     Route: 048
     Dates: start: 20180130
  2. VITAMIN C [Concomitant]
     Active Substance: ASCORBIC ACID
  3. SODIUM BICARB [Concomitant]
     Active Substance: SODIUM BICARBONATE
  4. KEPPRA [Concomitant]
     Active Substance: LEVETIRACETAM
  5. LANTUS [Concomitant]
     Active Substance: INSULIN GLARGINE
  6. HUMALOG [Concomitant]
     Active Substance: INSULIN LISPRO
  7. TACROLIMUS 1MG CAPSULES [Suspect]
     Active Substance: TACROLIMUS
     Indication: RENAL TRANSPLANT
     Route: 048
     Dates: start: 20180130
  8. LOW DOSE ASPIRIN [Concomitant]
     Active Substance: ASPIRIN

REACTIONS (2)
  - Rash [None]
  - Hypersensitivity [None]

NARRATIVE: CASE EVENT DATE: 2018
